FAERS Safety Report 6012885-6 (Version None)
Quarter: 2008Q4

REPORT INFORMATION
  Report Type: 
  Country: None (occurrence: None)
  Receive Date: 20081217
  Receipt Date: 20081202
  Transmission Date: 20090506
  Serious: Yes (Hospitalization)
  Sender: FDA-Public Use
  Company Number: UTC-000442

PATIENT
  Age: 45 Year
  Sex: Female
  Weight: 89.9 kg

DRUGS (11)
  1. REMODULIN [Suspect]
     Indication: PULMONARY ARTERIAL HYPERTENSION
     Dosage: 8.64 UG/KG (0.006 UG/KG, 1 IN 1 MIN), SUBCUTANEOUS
     Route: 058
     Dates: start: 20081023
  2. TRACLEER [Concomitant]
  3. REVATIO [Concomitant]
  4. COUMADIN [Concomitant]
  5. LASIX [Concomitant]
  6. AZATHIOPRINE [Concomitant]
  7. ASPIRIN [Concomitant]
  8. PREDNISONE [Concomitant]
  9. IRON (IRON) [Concomitant]
  10. CALCIUM (CALCIUM) [Concomitant]
  11. CHLOROQUINE PHOSPHATE [Concomitant]

REACTIONS (1)
  - CONVULSION [None]
